FAERS Safety Report 16379874 (Version 1)
Quarter: 2019Q2

REPORT INFORMATION
  Report Type: Report from Study
  Country: US (occurrence: US)
  Receive Date: 20190531
  Receipt Date: 20190531
  Transmission Date: 20190711
  Serious: Yes (Other)
  Sender: FDA-Public Use
  Company Number: PHEH2019US023163

PATIENT
  Age: 60 Year
  Sex: Female

DRUGS (5)
  1. MODAFINIL. [Concomitant]
     Active Substance: MODAFINIL
     Indication: PRODUCT USED FOR UNKNOWN INDICATION
     Route: 065
  2. OSPHENA [Concomitant]
     Active Substance: OSPEMIFENE
     Indication: PRODUCT USED FOR UNKNOWN INDICATION
     Route: 065
  3. ONDANSETRON [Concomitant]
     Active Substance: ONDANSETRON
     Indication: PRODUCT USED FOR UNKNOWN INDICATION
     Route: 065
  4. GILENYA [Suspect]
     Active Substance: FINGOLIMOD HYDROCHLORIDE
     Indication: MULTIPLE SCLEROSIS
     Dosage: 0.5 MG, QD
     Route: 048
     Dates: start: 20160413
  5. DALFAMPRIDINE. [Concomitant]
     Active Substance: DALFAMPRIDINE
     Indication: PRODUCT USED FOR UNKNOWN INDICATION
     Route: 065

REACTIONS (1)
  - Multiple sclerosis relapse [Unknown]

NARRATIVE: CASE EVENT DATE: 20190526
